FAERS Safety Report 13531903 (Version 2)
Quarter: 2021Q4

REPORT INFORMATION
  Report Type: Report from Study
  Country: TR (occurrence: TR)
  Receive Date: 20170510
  Receipt Date: 20211025
  Transmission Date: 20220303
  Serious: Yes (Death, Hospitalization)
  Sender: FDA-Public Use
  Company Number: TR-CELGENE-TUR-2014112026

PATIENT
  Age: 56 Year
  Sex: Female
  Weight: 80 kg

DRUGS (11)
  1. REVLIMID [Suspect]
     Active Substance: LENALIDOMIDE
     Indication: Plasma cell myeloma
     Dosage: 25 MILLIGRAM
     Route: 048
     Dates: start: 20140318
  2. DEXAMETHASONE [Suspect]
     Active Substance: DEXAMETHASONE
     Indication: Plasma cell myeloma
     Dosage: 40 MILLIGRAM
     Route: 065
     Dates: start: 201306
  3. DEXAMETHASONE [Suspect]
     Active Substance: DEXAMETHASONE
     Route: 048
  4. ZOLEDRONIC ACID [Concomitant]
     Active Substance: ZOLEDRONIC ACID
     Indication: Bone lesion
     Dosage: 4 MILLIGRAM
     Route: 065
     Dates: start: 201402
  5. ACYCLOVIR [Concomitant]
     Active Substance: ACYCLOVIR
     Indication: Infection prophylaxis
     Dosage: 400 MILLIGRAM
     Route: 065
     Dates: start: 201403
  6. SULFAMETHOXAZOLE [Concomitant]
     Active Substance: SULFAMETHOXAZOLE
     Indication: Infection prophylaxis
     Dosage: 1600 MILLIGRAM
     Route: 065
     Dates: start: 201403
  7. TRIMETHOPRIM [Concomitant]
     Active Substance: TRIMETHOPRIM
     Indication: Infection prophylaxis
     Dosage: 320 MILLIGRAM
     Route: 065
     Dates: start: 201403
  8. WARFARIN [Concomitant]
     Active Substance: WARFARIN
     Indication: Thrombosis prophylaxis
     Dosage: 5 MILLIGRAM
     Route: 065
     Dates: start: 201411
  9. FENTANYL [Concomitant]
     Active Substance: FENTANYL
     Indication: Pain
     Dosage: 50 MICROGRAM
     Route: 065
     Dates: start: 201406
  10. SERTRALINE [Concomitant]
     Active Substance: SERTRALINE HYDROCHLORIDE
     Indication: Depression
     Dosage: 50 MILLIGRAM
     Route: 065
     Dates: start: 201406
  11. LANSOPRAZOLE [Concomitant]
     Active Substance: LANSOPRAZOLE
     Indication: Prophylaxis against gastrointestinal ulcer
     Dosage: 30 MILLIGRAM
     Route: 065
     Dates: start: 201406

REACTIONS (4)
  - Febrile neutropenia [Fatal]
  - Pneumonia [Fatal]
  - Bacterial infection [Recovered/Resolved]
  - Acute respiratory distress syndrome [Fatal]

NARRATIVE: CASE EVENT DATE: 20140928
